FAERS Safety Report 24410089 (Version 1)
Quarter: 2024Q4

REPORT INFORMATION
  Report Type: Spontaneous
  Country: FR (occurrence: FR)
  Receive Date: 20241008
  Receipt Date: 20241008
  Transmission Date: 20250115
  Serious: Yes (Hospitalization)
  Sender: SANDOZ
  Company Number: FR-SANDOZ-SDZ2024FR084468

PATIENT
  Age: 30 Year
  Sex: Female

DRUGS (9)
  1. ALCOHOL [Suspect]
     Active Substance: ALCOHOL
     Indication: Product used for unknown indication
     Dosage: BETWEEN 0 AND 10US PER DAY.CONSUMPTION VARIES, DEPENDING ON PERIODS AND FLUCTUATIONS IN CANNABIS CON
     Route: 048
  2. BROMAZEPAM [Suspect]
     Active Substance: BROMAZEPAM
     Indication: Product used for unknown indication
     Dosage: UNK
     Route: 048
     Dates: start: 20240906
  3. CANNABIS SATIVA SUBSP. INDICA TOP [Suspect]
     Active Substance: CANNABIS SATIVA SUBSP. INDICA TOP
     Indication: Product used for unknown indication
     Dosage: FIRST CONTACT AT AGE 15. OCCASIONAL USE, NOW DAILY USE OF BETWEEN 10 AND 20 JOINTS/DAY. SHE TRIED TO
     Route: 055
     Dates: start: 2009
  4. COCAINE [Suspect]
     Active Substance: COCAINE
     Indication: Product used for unknown indication
     Dosage: STARTED USING 2.5 YEARS AGO. REGULAR USE FOR 3-4 MONTHS A YEAR AND A HALF AGO, LINKED TO HER CURRENT
     Route: 045
     Dates: start: 2021
  5. DIAZEPAM [Suspect]
     Active Substance: DIAZEPAM
     Indication: Product used for unknown indication
     Dosage: UNK
     Route: 065
     Dates: start: 20240906
  6. CHLORPROMAZINE [Suspect]
     Active Substance: CHLORPROMAZINE
     Indication: Product used for unknown indication
     Dosage: UNK
     Route: 065
  7. LITHIUM [Suspect]
     Active Substance: LITHIUM
     Indication: Product used for unknown indication
     Dosage: UNK
     Route: 065
  8. QUETIAPINE [Suspect]
     Active Substance: QUETIAPINE
     Indication: Product used for unknown indication
     Dosage: UNK
     Route: 065
  9. TRAMADOL [Suspect]
     Active Substance: TRAMADOL
     Indication: Product used for unknown indication
     Dosage: IN 1 DAY
     Route: 065

REACTIONS (6)
  - Enuresis [Recovering/Resolving]
  - Tremor [Recovering/Resolving]
  - Suicidal ideation [Unknown]
  - Anxiety [Unknown]
  - Drug abuse [Not Recovered/Not Resolved]
  - Withdrawal syndrome [Recovered/Resolved]
